FAERS Safety Report 19642513 (Version 2)
Quarter: 2021Q4

REPORT INFORMATION
  Report Type: Other
  Country: CA (occurrence: CA)
  Receive Date: 20210731
  Receipt Date: 20211111
  Transmission Date: 20220304
  Serious: Yes (Other)
  Sender: FDA-Public Use
  Company Number: None

PATIENT
  Age: 72 Year
  Sex: Female

DRUGS (5)
  1. FLUOROURACIL [Suspect]
     Active Substance: FLUOROURACIL
     Indication: Pancreatic carcinoma metastatic
     Route: 065
  2. IRINOTECAN HYDROCHLORIDE [Suspect]
     Active Substance: IRINOTECAN HYDROCHLORIDE
     Indication: Pancreatic carcinoma metastatic
     Route: 042
  3. OXALIPLATIN [Suspect]
     Active Substance: OXALIPLATIN
     Indication: Pancreatic carcinoma metastatic
     Dosage: 1 EVERY 2 WEEKS
     Route: 042
  4. LEUCOVORIN [Concomitant]
     Active Substance: LEUCOVORIN
  5. FLUOROURACIL [Concomitant]
     Active Substance: FLUOROURACIL

REACTIONS (2)
  - Dysarthria [Recovered/Resolved]
  - Neuropathy peripheral [Recovered/Resolved]
